FAERS Safety Report 5715695-X (Version None)
Quarter: 2008Q2

REPORT INFORMATION
  Report Type: 
  Country: None (occurrence: None)
  Receive Date: 20080423
  Receipt Date: 20080423
  Transmission Date: 20081010
  Serious: Yes (Hospitalization, Other)
  Sender: FDA-Public Use
  Company Number: None

PATIENT
  Sex: Male
  Weight: 66.22 kg

DRUGS (2)
  1. CISPLATIN [Suspect]
     Dosage: 188 MG
     Dates: start: 20070508
  2. CETUXIMAB [Suspect]
     Dates: end: 20070529

REACTIONS (1)
  - DEHYDRATION [None]
